FAERS Safety Report 7503344-X (Version None)
Quarter: 2011Q2

REPORT INFORMATION
  Report Type: 
  Country: None (occurrence: None)
  Receive Date: 20110525
  Receipt Date: 20110516
  Transmission Date: 20111010
  Serious: Yes (Hospitalization, Other)
  Sender: FDA-Public Use
  Company Number: US-ASTRAZENECA-2011SE10537

PATIENT
  Age: 637 Month
  Sex: Male
  Weight: 95.3 kg

DRUGS (11)
  1. CRESTOR [Suspect]
     Indication: HYPERCHOLESTEROLAEMIA
     Route: 048
     Dates: start: 20100111, end: 20110202
  2. LEVOTHYROXINE SODIUM [Concomitant]
     Route: 048
  3. NIASPAN [Concomitant]
     Route: 048
  4. LIPITOR [Concomitant]
     Dates: end: 20100101
  5. ASPIRIN [Concomitant]
     Route: 048
  6. PROVIGIL [Concomitant]
     Route: 048
  7. LISINOPRIL [Concomitant]
     Route: 048
  8. TOPROL-XL [Concomitant]
     Route: 048
     Dates: start: 20100202
  9. PLAVIX [Concomitant]
     Route: 048
  10. NITROSTAT [Concomitant]
     Dosage: 0.4 EVERY FIVE MIN
     Route: 060
  11. LIPITOR [Concomitant]
     Dates: start: 20091101

REACTIONS (5)
  - STENT PLACEMENT [None]
  - ACUTE MYOCARDIAL INFARCTION [None]
  - MUSCULAR WEAKNESS [None]
  - MYALGIA [None]
  - BLOOD CREATINE PHOSPHOKINASE INCREASED [None]
